FAERS Safety Report 8628433 (Version 4)
Quarter: 2012Q4

REPORT INFORMATION
  Report Type: 
  Country: US (occurrence: US)
  Receive Date: 20120621
  Receipt Date: 20120910
  Transmission Date: 20130627
  Serious: Yes (Hospitalization, Other)
  Sender: FDA-Public Use
  Company Number: US-ASTRAZENECA-2010SE51491

PATIENT
  Age: 50 Year
  Sex: Female
  Weight: 131.5 kg

DRUGS (4)
  1. NEXIUM [Suspect]
     Indication: GASTROOESOPHAGEAL REFLUX DISEASE
     Route: 048
  2. ANXIETY MEDICATION [Concomitant]
  3. BLOOD PRESSURE MEDICATION [Concomitant]
  4. STRESS MEDICATION [Concomitant]

REACTIONS (12)
  - Condition aggravated [Unknown]
  - Weight increased [Unknown]
  - Cardiac failure [Unknown]
  - Uterine cancer [Unknown]
  - Cerebrovascular accident [Unknown]
  - Pulmonary hypertension [Unknown]
  - Gastrooesophageal reflux disease [Unknown]
  - Arthritis [Unknown]
  - Sleep apnoea syndrome [Unknown]
  - Diabetes mellitus [Unknown]
  - Malaise [Unknown]
  - Drug dose omission [Unknown]
